FAERS Safety Report 14301048 (Version 5)
Quarter: 2018Q3

REPORT INFORMATION
  Report Type: Report from Study
  Country: GB (occurrence: GB)
  Receive Date: 20171219
  Receipt Date: 20180803
  Transmission Date: 20181010
  Serious: Yes (Hospitalization, Other)
  Sender: FDA-Public Use
  Company Number: GB-ROCHE-1995681

PATIENT
  Age: 79 Year
  Sex: Male

DRUGS (6)
  1. ESBRIET [Suspect]
     Active Substance: PIRFENIDONE
     Route: 048
     Dates: start: 20170909
  2. RAMIPRIL. [Concomitant]
     Active Substance: RAMIPRIL
     Indication: MYOCARDIAL INFARCTION
  3. ESBRIET [Suspect]
     Active Substance: PIRFENIDONE
     Route: 048
  4. ESBRIET [Suspect]
     Active Substance: PIRFENIDONE
     Indication: IDIOPATHIC PULMONARY FIBROSIS
     Route: 048
     Dates: start: 20170728
  5. AMLODIPINE [Concomitant]
     Active Substance: AMLODIPINE BESYLATE
  6. CLOPIDOGREL [Concomitant]
     Active Substance: CLOPIDOGREL BISULFATE
     Indication: MYOCARDIAL INFARCTION

REACTIONS (26)
  - Paraesthesia [Unknown]
  - Spinal disorder [Unknown]
  - Memory impairment [Unknown]
  - Weight decreased [Unknown]
  - Dysuria [Not Recovered/Not Resolved]
  - Dyspnoea [Unknown]
  - Fatigue [Unknown]
  - Metastases to spine [Unknown]
  - Nausea [Recovering/Resolving]
  - Hypotension [Unknown]
  - Agitation [Unknown]
  - Prostatomegaly [Unknown]
  - Prostate cancer [Unknown]
  - Dizziness [Unknown]
  - Gait inability [Unknown]
  - Malaise [Unknown]
  - Depression [Unknown]
  - Hypophagia [Unknown]
  - Back pain [Unknown]
  - Sciatica [Unknown]
  - Fall [Unknown]
  - Arthralgia [Unknown]
  - Constipation [Not Recovered/Not Resolved]
  - Sleep apnoea syndrome [Unknown]
  - Malaise [Not Recovered/Not Resolved]
  - Pain in extremity [Unknown]

NARRATIVE: CASE EVENT DATE: 20180101
